FAERS Safety Report 6825929-6 (Version None)
Quarter: 2010Q3

REPORT INFORMATION
  Report Type: 
  Country: None (occurrence: None)
  Receive Date: 20100709
  Receipt Date: 20100701
  Transmission Date: 20110219
  Serious: Yes (Other)
  Sender: FDA-Public Use
  Company Number: US-ASTRAZENECA-2007UW02433

PATIENT
  Age: 520 Month
  Sex: Male
  Weight: 108.9 kg

DRUGS (13)
  1. SEROQUEL [Suspect]
     Indication: SCHIZOPHRENIA
     Route: 048
     Dates: start: 19990127
  2. RISPERDAL [Concomitant]
     Indication: SCHIZOPHRENIA
     Dates: start: 19980701, end: 19980914
  3. ZYPREXA [Concomitant]
     Indication: SCHIZOPHRENIA
     Dates: start: 19971212, end: 19980214
  4. NAVANE [Concomitant]
     Dosage: 15 MG - 30 MG
     Dates: start: 19961206, end: 19990118
  5. PRILOSEC [Concomitant]
     Indication: GASTROOESOPHAGEAL REFLUX DISEASE
     Dates: start: 19981218
  6. PIROXICAM [Concomitant]
     Dates: start: 19981227
  7. CARISOPRODOL [Concomitant]
     Dates: start: 19990101
  8. WELLBUTRIN SR [Concomitant]
     Dosage: 100-300 MG
     Dates: start: 19990109
  9. OXYCONTIN [Concomitant]
     Dosage: 40-80 MG
     Dates: start: 19990409
  10. LOPRESSOR [Concomitant]
     Dosage: 50-350 MG
     Dates: start: 20000412
  11. NITROGLYCERIN [Concomitant]
     Dates: start: 20000527
  12. LIPITOR [Concomitant]
     Dosage: 20-40 MG
     Dates: start: 20000527
  13. ALBUTEROL [Concomitant]
     Dosage: 2 PILLS FOUR TIMES A DAY
     Dates: start: 20030926

REACTIONS (23)
  - ARTHRALGIA [None]
  - BLADDER OBSTRUCTION [None]
  - BLOOD CHOLESTEROL INCREASED [None]
  - BLOOD TRIGLYCERIDES INCREASED [None]
  - CORONARY ARTERY DISEASE [None]
  - CORONARY ARTERY OCCLUSION [None]
  - DIABETES MELLITUS [None]
  - DYSPNOEA [None]
  - HYPERLIPIDAEMIA [None]
  - HYPOACUSIS [None]
  - KNEE ARTHROPLASTY [None]
  - LIPIDS INCREASED [None]
  - MUSCLE SPASMS [None]
  - MUSCULOSKELETAL STIFFNESS [None]
  - NEPHROLITHIASIS [None]
  - OEDEMA PERIPHERAL [None]
  - OSTEOARTHRITIS [None]
  - PAIN [None]
  - PAIN IN EXTREMITY [None]
  - PANCREATITIS [None]
  - PANCREATITIS ACUTE [None]
  - STENT PLACEMENT [None]
  - TYPE 1 DIABETES MELLITUS [None]
